FAERS Safety Report 9984223 (Version 2)
Quarter: 2014Q1

REPORT INFORMATION
  Report Type: Report from Study
  Country: US (occurrence: US)
  Receive Date: 20140307
  Receipt Date: 20140307
  Transmission Date: 20141002
  Serious: Yes (Other)
  Sender: FDA-Public Use
  Company Number: US-ABBVIE-13P-163-1175815-00

PATIENT
  Age: 74 Year
  Sex: Female

DRUGS (6)
  1. HUMIRA [Suspect]
     Indication: CROHN^S DISEASE
     Dates: start: 201202, end: 201305
  2. ATIVAN [Concomitant]
     Indication: ANXIETY
  3. LISINOPRIL [Concomitant]
     Indication: HYPERTENSION
  4. IMURAN [Concomitant]
     Indication: CROHN^S DISEASE
  5. VITAMIN D2 [Concomitant]
     Indication: VITAMIN D ABNORMAL
  6. ASPIRIN [Concomitant]
     Indication: PROPHYLAXIS

REACTIONS (8)
  - Ear infection [Not Recovered/Not Resolved]
  - Sinusitis [Not Recovered/Not Resolved]
  - Pharyngitis [Not Recovered/Not Resolved]
  - Depression [Unknown]
  - Diarrhoea [Unknown]
  - Vomiting [Unknown]
  - Blood potassium decreased [Unknown]
  - Pyrexia [Unknown]
